FAERS Safety Report 4399698-6 (Version None)
Quarter: 2004Q3

REPORT INFORMATION
  Report Type: 
  Country: None (occurrence: None)
  Receive Date: 20040713
  Receipt Date: 20040629
  Transmission Date: 20050211
  Serious: Yes (Other)
  Sender: FDA-Public Use
  Company Number: US-JNJFOC-20040405311

PATIENT
  Age: 58 Year
  Sex: Female

DRUGS (3)
  1. REMICADE [Suspect]
     Indication: RHEUMATOID ARTHRITIS
     Dosage: 400 MG, 1 IN 8 WEEK
     Dates: start: 20000601
  2. REMICADE [Suspect]
     Indication: RHEUMATOID ARTHRITIS
     Dosage: 400 MG, 1 IN 8 WEEK
     Dates: start: 20040526
  3. METHOTREXATE [Concomitant]

REACTIONS (3)
  - CORONARY ARTERY DISEASE [None]
  - KELOID SCAR [None]
  - POST PROCEDURAL COMPLICATION [None]
